FAERS Safety Report 4426270-1 (Version None)
Quarter: 2004Q3

REPORT INFORMATION
  Report Type: 
  Country: None (occurrence: None)
  Receive Date: 20040811
  Receipt Date: 20040723
  Transmission Date: 20050211
  Serious: Yes (Life-Threatening)
  Sender: FDA-Public Use
  Company Number: 50724

PATIENT
  Age: 66 Year
  Sex: Male

DRUGS (1)
  1. URION UNO [Suspect]
     Indication: BENIGN PROSTATIC HYPERPLASIA
     Dosage: 1 TIME(S) PER DAY 10 MG, ORAL (INTRAGASTRAL)
     Route: 048
     Dates: start: 20040127, end: 20040131

REACTIONS (1)
  - CIRCULATORY COLLAPSE [None]
